FAERS Safety Report 10159850 (Version 2)
Quarter: 2015Q2

REPORT INFORMATION
  Report Type: Spontaneous
  Country: US (occurrence: US)
  Receive Date: 20140508
  Receipt Date: 20150505
  Transmission Date: 20150821
  Serious: No
  Sender: FDA-Public Use
  Company Number: US-GLAXOSMITHKLINE-A1036355A

PATIENT
  Age: 62 Year
  Sex: Female

DRUGS (1)
  1. TYKERB [Suspect]
     Active Substance: LAPATINIB DITOSYLATE
     Indication: BREAST CANCER
     Dosage: 250 MG TABLET AT 1000MG DAILYDECREASED TO 750  MG DAILY
     Route: 048
     Dates: start: 20120202

REACTIONS (4)
  - Rash [Unknown]
  - Paraesthesia [Unknown]
  - Laceration [Unknown]
  - Dry eye [Unknown]

NARRATIVE: CASE EVENT DATE: 20150331
